FAERS Safety Report 19701379 (Version 1)
Quarter: 2021Q3

REPORT INFORMATION
  Report Type: Spontaneous
  Country: GB (occurrence: GB)
  Receive Date: 20210813
  Receipt Date: 20210813
  Transmission Date: 20211014
  Serious: Yes (Other)
  Sender: FDA-Public Use
  Company Number: GB-ALLERGAN-2128132US

PATIENT
  Sex: Female
  Weight: 61.23 kg

DRUGS (4)
  1. BOTULINUM TOXIN TYPE A UNK [Suspect]
     Active Substance: BOTULINUM TOXIN TYPE A
     Indication: SKIN COSMETIC PROCEDURE
     Dosage: UNK UNK, SINGLE
  2. PAROXETINE. [Concomitant]
     Active Substance: PAROXETINE
  3. QUETIAPINE. [Concomitant]
     Active Substance: QUETIAPINE
  4. EVOREL [Concomitant]

REACTIONS (4)
  - Anxiety [Recovering/Resolving]
  - Condition aggravated [Recovering/Resolving]
  - Panic attack [Recovering/Resolving]
  - Mood swings [Unknown]

NARRATIVE: CASE EVENT DATE: 20210710
